FAERS Safety Report 7280256-0 (Version None)
Quarter: 2011Q1

REPORT INFORMATION
  Report Type: 
  Country: None (occurrence: None)
  Receive Date: 20110208
  Receipt Date: 20101101
  Transmission Date: 20110831
  Serious: Yes (Hospitalization)
  Sender: FDA-Public Use
  Company Number: US-BAYER-201027115NA

PATIENT
  Sex: Female
  Weight: 59.545 kg

DRUGS (14)
  1. ASPIRIN [Concomitant]
     Dosage: 81 MG (DAILY DOSE), QD, ORAL
     Route: 048
  2. UNCODEABLE ^UNCLASSIFIABLE^ [Concomitant]
     Indication: PAIN
     Dosage: EVERY 6 HOUR, PER NEED
     Route: 065
  3. DEXAMETHASONE [Concomitant]
     Dosage: FOR ONE DAY
     Route: 065
  4. DEXAMETHASONE [Concomitant]
     Dosage: FOR ONE DAY
     Route: 065
  5. SENOKOT [Concomitant]
     Indication: DIARRHOEA
     Dosage: 50/8.6 MG TWO PERO ORAL, EVERY MORNING FOR ONE WEEK
     Route: 048
  6. PERCOCET [Concomitant]
     Indication: PAIN
     Dosage: 5/325 MG, ONE PER ORAL, EVERY 6 HOURS PER NEED
     Route: 048
  7. MIRALAX [Concomitant]
     Indication: CONSTIPATION
     Dosage: DAILY PER NEED
     Route: 048
  8. TRICOR [Concomitant]
     Indication: BLOOD CHOLESTEROL INCREASED
     Dosage: USE IN 30-APR-2009
     Route: 065
  9. PRAVASTATIN [Concomitant]
     Dosage: USE IN 24-JAN-2007
     Route: 065
  10. WELLBUTRIN [Concomitant]
     Indication: DEPRESSION
     Route: 048
  11. DEXAMETHASONE [Concomitant]
     Dosage: FOR ONE DAY
     Route: 065
  12. ZOCOR [Concomitant]
     Route: 065
  13. YAZ [Suspect]
     Indication: PAIN
     Route: 048
     Dates: start: 20070901, end: 20090710
  14. DEXAMETHASONE [Concomitant]
     Dosage: FOR ONE DAY
     Route: 065

REACTIONS (10)
  - HAEMORRHAGIC TRANSFORMATION STROKE [None]
  - MEMORY IMPAIRMENT [None]
  - SPEECH DISORDER [None]
  - APHASIA [None]
  - DISTURBANCE IN ATTENTION [None]
  - CEREBROVASCULAR ACCIDENT [None]
  - READING DISORDER [None]
  - INTRACRANIAL VENOUS SINUS THROMBOSIS [None]
  - CONVULSION [None]
  - HEADACHE [None]
